FAERS Safety Report 12372699 (Version 1)
Quarter: 2016Q2

REPORT INFORMATION
  Report Type: Spontaneous
  Country: US (occurrence: US)
  Receive Date: 20160516
  Receipt Date: 20160516
  Transmission Date: 20160815
  Serious: Yes (Death, Hospitalization)
  Sender: FDA-Public Use
  Company Number: US-ALKERMES INC.-ALK-2016-001177

PATIENT
  Age: 44 Year
  Sex: Male
  Weight: 92.97 kg

DRUGS (2)
  1. XANAX [Concomitant]
     Active Substance: ALPRAZOLAM
     Indication: ANXIETY
     Dosage: 1 DF, QID
     Route: 048
  2. VIVITROL [Suspect]
     Active Substance: NALTREXONE
     Indication: DRUG DEPENDENCE
     Dosage: 380 MG, QMO
     Route: 030
     Dates: start: 201604

REACTIONS (7)
  - Euphoric mood [Unknown]
  - Overdose [Fatal]
  - Alcohol abuse [Unknown]
  - Pain [Recovered/Resolved]
  - Head titubation [Unknown]
  - Drug abuse [Unknown]
  - Fall [Unknown]

NARRATIVE: CASE EVENT DATE: 20160505
